FAERS Safety Report 8205157-2 (Version None)
Quarter: 2012Q1

REPORT INFORMATION
  Report Type: 
  Country: None (occurrence: None)
  Receive Date: 20120313
  Receipt Date: 20120307
  Transmission Date: 20120608
  Serious: Yes (Hospitalization)
  Sender: FDA-Public Use
  Company Number: NL-GLAXOSMITHKLINE-B0787780A

PATIENT
  Sex: Male

DRUGS (1)
  1. SUMATRIPTAN [Suspect]
     Indication: HEADACHE
     Dosage: 50MG PER DAY
     Route: 048
     Dates: start: 20120302, end: 20120302

REACTIONS (3)
  - HYPERHIDROSIS [None]
  - ARTERIOSPASM CORONARY [None]
  - NAUSEA [None]
